FAERS Safety Report 24065399 (Version 1)
Quarter: 2024Q3

REPORT INFORMATION
  Report Type: Spontaneous
  Country: US (occurrence: US)
  Receive Date: 20240709
  Receipt Date: 20240709
  Transmission Date: 20241016
  Serious: No
  Sender: SOFGEN PHARMACEUTICALS
  Company Number: US-Sofgen Pharmaceuticals, LLC-2158928

PATIENT
  Sex: Female
  Weight: 61.818 kg

DRUGS (1)
  1. PROGESTERONE [Suspect]
     Active Substance: PROGESTERONE
     Route: 048

REACTIONS (2)
  - Weight increased [Unknown]
  - Somnolence [Unknown]
